FAERS Safety Report 5474058-5 (Version None)
Quarter: 2007Q3

REPORT INFORMATION
  Report Type: 
  Country: None (occurrence: None)
  Receive Date: 20070928
  Receipt Date: 20070928
  Transmission Date: 20080115
  Serious: Yes (Life-Threatening, Hospitalization, Disabling)
  Sender: FDA-Public Use
  Company Number: None

PATIENT
  Sex: Male
  Weight: 95.2554 kg

DRUGS (2)
  1. AVELOX [Suspect]
     Indication: SINUSITIS
     Dosage: ONE DAILY ORAL
     Route: 048
     Dates: start: 20070219
  2. AVELOX [Suspect]
     Indication: SINUSITIS
     Dosage: ONE DAILY ORAL
     Route: 048
     Dates: start: 20070316

REACTIONS (13)
  - CONFUSIONAL STATE [None]
  - DEAFNESS [None]
  - DEHYDRATION [None]
  - DEPRESSION [None]
  - DIARRHOEA [None]
  - GASTROINTESTINAL DISORDER [None]
  - GASTROINTESTINAL INFLAMMATION [None]
  - INSOMNIA [None]
  - MUSCLE ATROPHY [None]
  - MYALGIA [None]
  - NIGHTMARE [None]
  - TREMOR [None]
  - WEIGHT DECREASED [None]
